FAERS Safety Report 5108194-X (Version None)
Quarter: 2006Q3

REPORT INFORMATION
  Report Type: 
  Country: None (occurrence: None)
  Receive Date: 20060915
  Receipt Date: 20060907
  Transmission Date: 20061208
  Serious: Yes (Death)
  Sender: FDA-Public Use
  Company Number: 2006BH013140

PATIENT
  Age: 65 Year
  Sex: Male
  Weight: 66.8 kg

DRUGS (23)
  1. DIANEAL [Suspect]
     Indication: RENAL FAILURE CHRONIC
     Dosage: 2.5 L, IP
     Route: 033
     Dates: start: 20060112
  2. DIANEAL [Suspect]
     Indication: PERITONEAL DIALYSIS
     Dosage: IP
     Route: 033
  3. ADVAIR DISKUS 100/50 [Concomitant]
  4. AMIODARONE HCL [Concomitant]
  5. ASPIRIN [Concomitant]
  6. ATACAND [Concomitant]
  7. CLONIDINE [Concomitant]
  8. COMBIVENT [Concomitant]
  9. EFFEXOR [Concomitant]
  10. ISOSORBIDE MONONITRATE [Concomitant]
  11. LIDOCAINE [Concomitant]
  12. LOPRESSOR [Concomitant]
  13. MARINOL [Concomitant]
  14. NEURONTIN [Concomitant]
  15. NORVASC [Concomitant]
  16. PHOSLO [Concomitant]
  17. PLAVIX [Concomitant]
  18. PROTONIX [Concomitant]
  19. QUININE SULFATE [Concomitant]
  20. REGLAN [Concomitant]
  21. ROCALTROL [Concomitant]
  22. SINGULAIR [Concomitant]
  23. DIALYVITE [Concomitant]

REACTIONS (2)
  - CARDIAC ARREST [None]
  - MYOCARDIAL INFARCTION [None]
